FAERS Safety Report 7675551-7 (Version None)
Quarter: 2011Q3

REPORT INFORMATION
  Report Type: 
  Country: None (occurrence: None)
  Receive Date: 20110810
  Receipt Date: 20110727
  Transmission Date: 20111222
  Serious: Yes (Hospitalization, Other)
  Sender: FDA-Public Use
  Company Number: PHHY2011FR68532

PATIENT
  Sex: Female

DRUGS (17)
  1. ASPIRIN [Suspect]
     Dosage: 1 DF, QD
     Route: 048
     Dates: end: 20110706
  2. CACIT VITAMINE D3 [Suspect]
     Dosage: 100MG / 880 IU
     Route: 048
     Dates: end: 20110706
  3. VALSARTAN [Suspect]
     Dosage: 1 DF, QD
     Route: 048
     Dates: end: 20110706
  4. TERCIAN [Suspect]
     Dosage: UNK UKN, UNK
     Route: 048
     Dates: end: 20110706
  5. VENTOLIN [Suspect]
     Dosage: 1 DF, QD OR ON DEMAND
     Route: 002
     Dates: end: 20110706
  6. NEBIVOLOL HCL [Suspect]
     Dosage: 1 DF, QD
     Route: 048
  7. LANSOPRAZOLE [Suspect]
     Dosage: 1 DF, QD
     Route: 048
     Dates: end: 20110706
  8. SPIRIVA [Suspect]
     Dosage: 1 DF, QD
     Dates: end: 20110706
  9. NEBIVOLOL HCL [Suspect]
     Dosage: 10 MG, QD
     Route: 048
     Dates: end: 20110706
  10. HALOPERIDOL [Suspect]
     Dosage: 0.071 DF, (1 IN 2 WEEKS)
     Route: 042
  11. SINGULAIR [Suspect]
     Dosage: 1 DF, QD
  12. OXYCODONE HCL [Suspect]
     Dosage: 1 DF, BID
     Route: 048
     Dates: end: 20110706
  13. PRAVASTATIN [Suspect]
     Dosage: 1 DF, QD
  14. METFORMIN HCL [Suspect]
     Dosage: 1000 MG, TID
     Dates: end: 20110706
  15. PRAZEPAM [Suspect]
     Dosage: 1 DF, TID
     Dates: end: 20110706
  16. SERETIDE DISKUS [Suspect]
     Dosage: 2 DF, BID (250/50 ?G/DOSE)
     Route: 002
  17. CLORAZEPATE DIPOTASSIUM [Suspect]
     Dosage: 1 DF, QD
     Route: 048

REACTIONS (28)
  - RALES [None]
  - INFLAMMATION [None]
  - TOXICITY TO VARIOUS AGENTS [None]
  - LYMPHOPENIA [None]
  - HYPOTENSION [None]
  - ANION GAP INCREASED [None]
  - DEHYDRATION [None]
  - ESCHERICHIA TEST POSITIVE [None]
  - METABOLIC ACIDOSIS [None]
  - PO2 INCREASED [None]
  - HYPOCHLORAEMIA [None]
  - SEPSIS [None]
  - FAECES DISCOLOURED [None]
  - DIARRHOEA [None]
  - C-REACTIVE PROTEIN INCREASED [None]
  - BLOOD BICARBONATE DECREASED [None]
  - SHIGELLA TEST POSITIVE [None]
  - HYPOPROTEINAEMIA [None]
  - HEART RATE INCREASED [None]
  - BLOOD CREATININE INCREASED [None]
  - AZOTAEMIA [None]
  - PCO2 DECREASED [None]
  - HYPERKALAEMIA [None]
  - HYPONATRAEMIA [None]
  - BLOOD LACTIC ACID DECREASED [None]
  - RENAL FAILURE ACUTE [None]
  - DISORIENTATION [None]
  - URINE POTASSIUM INCREASED [None]
